FAERS Safety Report 5528061-7 (Version None)
Quarter: 2007Q4

REPORT INFORMATION
  Report Type: 
  Country: None (occurrence: None)
  Receive Date: 20071126
  Receipt Date: 20071126
  Transmission Date: 20080405
  Serious: Yes (Other)
  Sender: FDA-Public Use
  Company Number: None

PATIENT
  Age: 28 Year
  Sex: Female
  Weight: 56.6996 kg

DRUGS (1)
  1. ZICAM ZINCUM GLUCONICUM 2X ZYCAM LLC-MATRIXX INITAITIVES- [Suspect]
     Indication: NASOPHARYNGITIS
     Dosage: 1 COLD REMEDY SWAB ONCE NASAL
     Route: 045
     Dates: start: 20071124, end: 20071124

REACTIONS (2)
  - FEELING ABNORMAL [None]
  - NASAL DISCOMFORT [None]
